FAERS Safety Report 9775490 (Version 3)
Quarter: 2014Q1

REPORT INFORMATION
  Report Type: Spontaneous
  Country: US (occurrence: US)
  Receive Date: 20131220
  Receipt Date: 20140318
  Transmission Date: 20141002
  Serious: No
  Sender: FDA-Public Use
  Company Number: US-GALDERMA-US13003560

PATIENT
  Age: 43 Year
  Sex: Female

DRUGS (6)
  1. MIRVASO (BRIMONIDINE) TOPICAL GEL, 0.33% [Suspect]
     Indication: ROSACEA
     Dosage: 0.33%
     Route: 061
     Dates: start: 20131104, end: 20131107
  2. METROLOTION(METRONIDAZOLE) TOPICAL LOTION, 0.75% [Concomitant]
     Indication: ROSACEA
     Dosage: 0.75%
     Route: 061
     Dates: start: 2003
  3. CETAPHIL DAILY FACIAL CLEANSER [Concomitant]
     Indication: THERAPEUTIC SKIN CARE TOPICAL
     Route: 061
  4. CETAPHIL MOISTURIZING LOTION [Concomitant]
     Indication: DRY SKIN PROPHYLAXIS
     Route: 061
  5. JOLESSA (LEVONORGESTREL/ETHINYL ESTRADIOL) [Concomitant]
     Indication: CONTRACEPTION
     Route: 048
  6. VITAMINS [Concomitant]
     Indication: SUPPLEMENTATION THERAPY
     Route: 048

REACTIONS (7)
  - Condition aggravated [Recovered/Resolved]
  - Burns second degree [Recovered/Resolved]
  - Pruritus [Recovered/Resolved]
  - Erythema [Recovered/Resolved]
  - Skin burning sensation [Recovered/Resolved]
  - Headache [Recovered/Resolved]
  - Drug effect decreased [Recovered/Resolved]
